FAERS Safety Report 4390976-3 (Version None)
Quarter: 2004Q3

REPORT INFORMATION
  Report Type: 
  Country: None (occurrence: None)
  Receive Date: 20040701
  Receipt Date: 20040701
  Transmission Date: 20050211
  Serious: Yes (Life-Threatening)
  Sender: FDA-Public Use
  Company Number: None

PATIENT
  Age: 60 Year
  Sex: Male
  Weight: 78.0187 kg

DRUGS (1)
  1. SULFASALAZINE [Suspect]
     Indication: COLITIS ULCERATIVE
     Dosage: 2000 MG PO BID
     Route: 048
     Dates: start: 20040204, end: 20040304

REACTIONS (3)
  - DERMATITIS [None]
  - LEUKOPENIA [None]
  - NEUTROPENIA [None]
